FAERS Safety Report 5799526-8 (Version None)
Quarter: 2008Q3

REPORT INFORMATION
  Report Type: 
  Country: None (occurrence: None)
  Receive Date: 20080703
  Receipt Date: 20080620
  Transmission Date: 20090109
  Serious: Yes (Other)
  Sender: FDA-Public Use
  Company Number: MX-ELI_LILLY_AND_COMPANY-MX200806004858

PATIENT
  Sex: Female

DRUGS (5)
  1. STRATTERA [Suspect]
     Indication: ATTENTION DEFICIT/HYPERACTIVITY DISORDER
     Dosage: 18 MG, 2/D
     Route: 048
  2. STRATTERA [Suspect]
     Dosage: 10 MG, 2/D
     Route: 065
  3. KEPPRA [Concomitant]
     Indication: CONVULSION
     Dosage: UNK, UNKNOWN
     Route: 065
  4. LAMICTAL [Concomitant]
     Indication: CONVULSION
     Dosage: UNK, UNKNOWN
     Route: 065
  5. CLONAZEPAM [Concomitant]
     Indication: CONVULSION
     Dosage: UNK, UNKNOWN
     Route: 065

REACTIONS (1)
  - MYOCLONIC EPILEPSY [None]
